FAERS Safety Report 19516677 (Version 2)
Quarter: 2021Q3

REPORT INFORMATION
  Report Type: Spontaneous
  Country: GB (occurrence: GB)
  Receive Date: 20210709
  Receipt Date: 20210922
  Transmission Date: 20211014
  Serious: Yes (Hospitalization, Other)
  Sender: FDA-Public Use
  Company Number: GB-BAXTER-2021BAX018861

PATIENT
  Age: 8 Year
  Sex: Male
  Weight: 21.8 kg

DRUGS (73)
  1. CHLORPHENAMINE [Concomitant]
     Active Substance: CHLORPHENIRAMINE MALEATE
     Dosage: 5 MG, PRN
     Route: 042
     Dates: start: 20210713
  2. DOCUSATE [Concomitant]
     Active Substance: DOCUSATE
     Dosage: 300 MG, QD
     Route: 048
     Dates: start: 20210628
  3. METOCLOPRAMIDE. [Concomitant]
     Active Substance: METOCLOPRAMIDE
     Indication: NAUSEA
     Dosage: 15 MG (5 MG, 3 IN 1 DAY)
     Route: 048
     Dates: start: 20210508
  4. MORPHINE [Concomitant]
     Active Substance: MORPHINE
     Dosage: 10 MG (AS REQUIRED)
     Route: 048
     Dates: start: 20210509
  5. CYCLOPHOSPHAMIDE INJECTION 1G [Suspect]
     Active Substance: CYCLOPHOSPHAMIDE
     Indication: NEOPLASM MALIGNANT
     Dosage: 210 MG (1 IN 1 DAY)
     Route: 042
     Dates: start: 20210504
  6. CYCLOPHOSPHAMIDE INJECTION 1G [Suspect]
     Active Substance: CYCLOPHOSPHAMIDE
     Indication: NEUROBLASTOMA
     Dosage: 210 MG QD (1 IN 1 DAY) (4 DAYS)
     Route: 042
     Dates: start: 20210401, end: 20210405
  7. SEVREDOL [Concomitant]
     Active Substance: MORPHINE
     Indication: PRODUCT USED FOR UNKNOWN INDICATION
     Dosage: 30 MG, Q4H
     Route: 048
     Dates: start: 20210324, end: 20210504
  8. CYCLIZINE [Concomitant]
     Active Substance: CYCLIZINE
     Indication: ANTIEMETIC SUPPORTIVE CARE
     Dosage: 75 MG (25 MG,3 IN 1 DAY)
     Route: 042
     Dates: start: 20210330
  9. DEXAMETHASONE. [Concomitant]
     Active Substance: DEXAMETHASONE
     Indication: CHEMOTHERAPY SIDE EFFECT PROPHYLAXIS
     Dosage: 4 MG (2 MG,2 IN 1 DAY)
     Route: 048
     Dates: start: 20210531
  10. DOCUSATE [Concomitant]
     Active Substance: DOCUSATE
     Dosage: 50 MG, QD
     Route: 048
     Dates: start: 20210627
  11. HEPARIN [Concomitant]
     Active Substance: HEPARIN SODIUM
     Indication: PRODUCT USED FOR UNKNOWN INDICATION
     Dosage: 10 UNITS/ML (3 IN 1 DAY)
     Route: 042
     Dates: start: 20210329
  12. ONDANSETRON [Concomitant]
     Active Substance: ONDANSETRON
     Dosage: 12 MG (4 MG,3 IN 1 DAY)
     Route: 042
     Dates: start: 20210602
  13. TOPOTECAN HYDROCHLORIDE. [Suspect]
     Active Substance: TOPOTECAN HYDROCHLORIDE
     Dosage: 0.64 MG (1 IN 1 DAY)
     Route: 042
     Dates: start: 20210504
  14. CISPLATIN. [Suspect]
     Active Substance: CISPLATIN
     Indication: NEUROBLASTOMA
     Route: 065
     Dates: start: 20190202, end: 20190413
  15. VINCRISTINE [Suspect]
     Active Substance: VINCRISTINE
     Indication: NEUROBLASTOMA
     Route: 065
     Dates: start: 20190202, end: 20190413
  16. DEXAMETHASONE. [Concomitant]
     Active Substance: DEXAMETHASONE
     Dosage: 4 MG, QD
     Route: 048
     Dates: start: 20210406, end: 20210407
  17. GABAPENTIN. [Concomitant]
     Active Substance: GABAPENTIN
     Indication: PAIN
     Dosage: 600 MG (200 MG, 3 IN 1 DAY)
     Route: 048
     Dates: start: 20210329
  18. LEVOMEPROMAZINE [Concomitant]
     Active Substance: LEVOMEPROMAZINE
     Indication: ANTIEMETIC SUPPORTIVE CARE
     Dosage: 2.2 MG (1.1 MG, 2 IN 1 DAY)
     Route: 042
     Dates: start: 20210601
  19. METOCLOPRAMIDE. [Concomitant]
     Active Substance: METOCLOPRAMIDE
     Indication: PROPHYLAXIS
     Dosage: 15 MG (5 MG, 3 IN 1 DAY)
     Route: 042
     Dates: start: 20210330, end: 20210507
  20. MORPHINE [Concomitant]
     Active Substance: MORPHINE
     Dosage: 40 MG, QD (SUSTAINED RELEASE)
     Route: 048
     Dates: start: 20210715
  21. MOVICOL [Concomitant]
     Active Substance: POLYETHYLENE GLYCOL 3350\POTASSIUM CHLORIDE\SODIUM BICARBONATE\SODIUM CHLORIDE
     Indication: CONSTIPATION
     Dosage: UNK (1?2 SACHETS AS REQUIRED)
     Route: 048
     Dates: start: 20210517
  22. ONDANSETRON [Concomitant]
     Active Substance: ONDANSETRON
     Indication: ANTIEMETIC SUPPORTIVE CARE
     Dosage: 12 MG (4 MG,3 IN 1 DAY)
     Route: 042
     Dates: start: 20210330
  23. HYOSCINE [Concomitant]
     Active Substance: SCOPOLAMINE
     Indication: PRODUCT USED FOR UNKNOWN INDICATION
     Dosage: 0.5 MG, PRN
     Route: 061
     Dates: start: 20210630
  24. TOPOTECAN HYDROCHLORIDE. [Suspect]
     Active Substance: TOPOTECAN HYDROCHLORIDE
     Indication: NEOPLASM MALIGNANT
     Dosage: 0.64 MG (1 IN 1 DAY)
     Route: 065
     Dates: start: 20210504
  25. TOPOTECAN HYDROCHLORIDE. [Suspect]
     Active Substance: TOPOTECAN HYDROCHLORIDE
     Indication: NEUROBLASTOMA
     Dosage: 0.63 MG/M2, QD
     Route: 065
     Dates: start: 20210728
  26. VENETOCLAX. [Suspect]
     Active Substance: VENETOCLAX
     Indication: NEOPLASM MALIGNANT
     Dosage: 350 MG (350 MG? 2) (8 DAYS), TABLET
     Route: 048
     Dates: start: 20210330, end: 20210407
  27. ALLOPURINOL. [Concomitant]
     Active Substance: ALLOPURINOL
     Indication: TUMOUR LYSIS SYNDROME
     Dosage: 240 MG (1 IN 1 DAY)
     Route: 048
     Dates: start: 20210330, end: 20210404
  28. DEXAMETHASONE. [Concomitant]
     Active Substance: DEXAMETHASONE
     Indication: PROPHYLAXIS OF NAUSEA AND VOMITING
     Dosage: 4 MG, QD
     Route: 042
     Dates: start: 20210504, end: 20210605
  29. DOCUSATE [Concomitant]
     Active Substance: DOCUSATE
     Indication: CONSTIPATION PROPHYLAXIS
     Dosage: 300 MG (100 MG, 3 IN 1 DAY)
     Route: 048
     Dates: start: 20210508
  30. MORPHINE [Concomitant]
     Active Substance: MORPHINE
     Dosage: 10 MG, PRN
     Route: 048
     Dates: start: 20210509
  31. NORMAL SALINE [Concomitant]
     Active Substance: SODIUM CHLORIDE
     Indication: TUMOUR LYSIS SYNDROME
     Dosage: UNK (375 ML)
     Route: 042
     Dates: start: 20210330, end: 20210407
  32. OMEPRAZOLE. [Concomitant]
     Active Substance: OMEPRAZOLE
     Indication: DYSPEPSIA
     Dosage: 20 MG (20 MG,1 IN 1 DAY)
     Route: 048
     Dates: start: 20210310
  33. CYCLOPHOSPHAMIDE INJECTION 1G [Suspect]
     Active Substance: CYCLOPHOSPHAMIDE
     Dosage: 210 MG (1 IN 1 DAY)
     Route: 042
     Dates: start: 20210504
  34. TOPOTECAN HYDROCHLORIDE. [Suspect]
     Active Substance: TOPOTECAN HYDROCHLORIDE
     Dosage: 0.64 MG/M2, QD
     Route: 042
     Dates: start: 20210401, end: 20210508
  35. VENETOCLAX. [Suspect]
     Active Substance: VENETOCLAX
     Dosage: 350 MG (350 MG? 2)?TABLET
     Route: 065
     Dates: start: 20210504
  36. CHLORPHENAMINE [Concomitant]
     Active Substance: CHLORPHENIRAMINE MALEATE
     Indication: ALLERGIC TRANSFUSION REACTION
     Dosage: 4 MG (AS REQUIRED)
     Route: 048
     Dates: start: 20210601
  37. CHLORPHENAMINE [Concomitant]
     Active Substance: CHLORPHENIRAMINE MALEATE
     Indication: HYPERSENSITIVITY
     Dosage: 4 MG (AS REQUIRED)
     Route: 042
     Dates: start: 20210329
  38. DEXAMETHASONE. [Concomitant]
     Active Substance: DEXAMETHASONE
     Indication: NAUSEA
     Dosage: 8 MG, QD
     Route: 048
     Dates: start: 20210330, end: 20210403
  39. DEXAMETHASONE. [Concomitant]
     Active Substance: DEXAMETHASONE
     Dosage: 6 MG, QD
     Route: 042
     Dates: start: 20210403, end: 20210406
  40. DEXAMETHASONE. [Concomitant]
     Active Substance: DEXAMETHASONE
     Dosage: 4 MG, QD
     Route: 042
     Dates: start: 20210531, end: 20210606
  41. DEXAMETHASONE. [Concomitant]
     Active Substance: DEXAMETHASONE
     Dosage: 3.8 MG, QD
     Route: 048
     Dates: start: 20210605, end: 20210609
  42. LIPEGFILGRASTIM [Concomitant]
     Active Substance: LIPEGFILGRASTIM
     Indication: BLOOD DISORDER PROPHYLAXIS
     Dosage: 2.5 MG (5 MG, 3 IN 1 DAY)
     Route: 058
     Dates: start: 20210509, end: 20210510
  43. MORPHINE [Concomitant]
     Active Substance: MORPHINE
     Indication: PAIN
     Dosage: 10 MG (AS REQUIRED)
     Route: 048
     Dates: start: 20210509
  44. HYOSCINE [Concomitant]
     Active Substance: SCOPOLAMINE
     Dosage: 500 MG, CONT
     Route: 062
     Dates: start: 20210508, end: 20210509
  45. TOPOTECAN HYDROCHLORIDE. [Suspect]
     Active Substance: TOPOTECAN HYDROCHLORIDE
     Dosage: 0.64 MG (1 IN 1 DAY)
     Route: 042
     Dates: start: 20210401, end: 20210405
  46. VENETOCLAX. [Suspect]
     Active Substance: VENETOCLAX
     Dosage: 170 MG, QD
     Route: 048
     Dates: start: 20210330, end: 20210330
  47. CARBOPLATIN. [Suspect]
     Active Substance: CARBOPLATIN
     Indication: NEUROBLASTOMA
     Route: 065
     Dates: start: 20190202, end: 20190413
  48. DINUTUXIMAB BETA [Suspect]
     Active Substance: DINUTUXIMAB BETA
     Indication: NEUROBLASTOMA
     Route: 065
     Dates: start: 20190424, end: 20200522
  49. ISOTRETINOIN. [Suspect]
     Active Substance: ISOTRETINOIN
     Indication: NEUROBLASTOMA
     Route: 065
     Dates: start: 20190424, end: 20200522
  50. COLECALCIFEROL [Concomitant]
     Active Substance: CHOLECALCIFEROL
     Indication: VITAMIN SUPPLEMENTATION
     Dosage: UNK (1 CAPSULE,3 IN 1 WEEK)
     Route: 048
     Dates: start: 20210331
  51. COTRIMOXAZOLE [Concomitant]
     Active Substance: SULFAMETHOXAZOLE\TRIMETHOPRIM
     Indication: ANTIBIOTIC PROPHYLAXIS
     Dosage: 360 MG (1 IN 1 DAY)
     Route: 048
     Dates: start: 20210331
  52. DEXAMETHASONE. [Concomitant]
     Active Substance: DEXAMETHASONE
     Dosage: 6 MG, QD
     Route: 048
     Dates: start: 20210726
  53. MORPHINE [Concomitant]
     Active Substance: MORPHINE
     Dosage: 40 MG (20 MG, 2 IN 1 DAY)
     Route: 048
     Dates: start: 20210517
  54. MORPHINE [Concomitant]
     Active Substance: MORPHINE
     Dosage: 120 MG, QD (SUSTAINED RELEASE)
     Route: 048
     Dates: start: 20210504, end: 20210509
  55. MORPHINE [Concomitant]
     Active Substance: MORPHINE
     Dosage: 80 MG, QD (SUSTAINED RELEASE)
     Route: 048
     Dates: start: 20210509, end: 20210512
  56. VENETOCLAX. [Suspect]
     Active Substance: VENETOCLAX
     Dosage: 350 MG, QD
     Route: 048
     Dates: start: 20210331
  57. DEXAMETHASONE. [Concomitant]
     Active Substance: DEXAMETHASONE
     Indication: ANALGESIC THERAPY
     Dosage: 4 MG (2 MG,2 IN 1 DAY)
     Route: 042
     Dates: start: 20210406
  58. DOCUSATE [Concomitant]
     Active Substance: DOCUSATE
     Indication: FAECES HARD
     Dosage: 1000 MG, QD
     Route: 048
     Dates: start: 20210329, end: 20210508
  59. LEVOMEPROMAZINE [Concomitant]
     Active Substance: LEVOMEPROMAZINE
     Dosage: 2.2 MG, QD
     Route: 042
     Dates: start: 20210628
  60. LEVOMEPROMAZINE [Concomitant]
     Active Substance: LEVOMEPROMAZINE
     Dosage: 2.2 MG, QD
     Route: 042
     Dates: start: 20210507, end: 20210508
  61. MIDAZOLAM. [Concomitant]
     Active Substance: MIDAZOLAM
     Indication: PAIN
     Dosage: 2 MG (AS REQUIRED)
     Route: 048
     Dates: start: 20210321
  62. MORPHINE [Concomitant]
     Active Substance: MORPHINE
     Dosage: 20 MG, PRN
     Route: 048
     Dates: start: 20210504, end: 20210509
  63. MELPHALAN. [Suspect]
     Active Substance: MELPHALAN
     Indication: NEUROBLASTOMA
     Route: 065
     Dates: start: 20190424, end: 20200522
  64. TEMOZOLOMIDE. [Suspect]
     Active Substance: TEMOZOLOMIDE
     Indication: NEUROBLASTOMA
     Route: 065
     Dates: start: 20200623, end: 20200724
  65. ETOPOSIDE. [Suspect]
     Active Substance: ETOPOSIDE
     Indication: NEUROBLASTOMA
     Route: 065
     Dates: start: 20190202, end: 20190413
  66. BUSULFAN. [Suspect]
     Active Substance: BUSULFAN
     Indication: NEUROBLASTOMA
     Route: 065
     Dates: start: 20190424, end: 20200522
  67. SEVREDOL [Concomitant]
     Active Substance: MORPHINE
     Dosage: 10 MG, PRN
     Route: 048
     Dates: start: 20210629
  68. CHLORPHENAMINE [Concomitant]
     Active Substance: CHLORPHENIRAMINE MALEATE
     Dosage: 2.5 MG, PRN
     Route: 042
     Dates: start: 20210412, end: 20210412
  69. CYCLIZINE [Concomitant]
     Active Substance: CYCLIZINE
     Dosage: 75 MG (25 MG,3 IN 1 DAY)
     Route: 048
     Dates: start: 20210602
  70. MORPHINE [Concomitant]
     Active Substance: MORPHINE
     Dosage: 60 MG, QD (SUSTAINED RELEASE)
     Route: 048
     Dates: start: 20210512, end: 20210517
  71. TINZAPARIN [Concomitant]
     Active Substance: TINZAPARIN
     Indication: ANTICOAGULANT THERAPY
     Dosage: 6000 IU (1 DAY)
     Route: 058
     Dates: start: 20210526
  72. CYCLOPHOSPHAMIDE INJECTION 1G [Suspect]
     Active Substance: CYCLOPHOSPHAMIDE
     Dosage: 210 MG (1 IN 1 DAY) (4 DAYS)
     Route: 042
     Dates: start: 20210401, end: 20210405
  73. TOPOTECAN HYDROCHLORIDE. [Suspect]
     Active Substance: TOPOTECAN HYDROCHLORIDE
     Dosage: 0.65 MG/M2, QD
     Route: 042
     Dates: start: 20210601, end: 20210605

REACTIONS (9)
  - Ear pain [Unknown]
  - White blood cell count decreased [Unknown]
  - Vomiting [Unknown]
  - Cellulitis [Unknown]
  - Febrile neutropenia [Not Recovered/Not Resolved]
  - Palpitations [Unknown]
  - Oropharyngeal pain [Unknown]
  - Product use issue [Unknown]
  - Nodule [Unknown]

NARRATIVE: CASE EVENT DATE: 20210609
